FAERS Safety Report 12010197 (Version 1)
Quarter: 2016Q1

REPORT INFORMATION
  Report Type: Spontaneous
  Country: IT (occurrence: IT)
  Receive Date: 20160205
  Receipt Date: 20160205
  Transmission Date: 20160526
  Serious: Yes (Hospitalization)
  Sender: FDA-Public Use
  Company Number: IT-PFIZER INC-2016067425

PATIENT
  Age: 73 Year
  Sex: Female

DRUGS (7)
  1. ACTOS [Interacting]
     Active Substance: PIOGLITAZONE HYDROCHLORIDE
     Indication: TYPE 2 DIABETES MELLITUS
     Dosage: 30 MG, 1X/DAY
     Route: 048
     Dates: start: 20130101, end: 20130615
  2. LANTUS [Interacting]
     Active Substance: INSULIN GLARGINE
     Indication: TYPE 2 DIABETES MELLITUS
     Dosage: 100 U/ML INJECTABLE SOLUTION, 30 IU DAILY
     Route: 058
     Dates: start: 20130101, end: 20130615
  3. HUMALOG [Interacting]
     Active Substance: INSULIN LISPRO
     Indication: TYPE 2 DIABETES MELLITUS
     Dosage: KWIKPEN 100 U/ML INJECTABLE SOLUTION, 52 IU DAILY
     Route: 058
     Dates: start: 20130101, end: 20130615
  4. COMBISARTAN [Concomitant]
     Active Substance: HYDROCHLOROTHIAZIDE\LOSARTAN POTASSIUM
     Dosage: 160/25 MG FILM COATED TABLETS
  5. ATENOLOL. [Suspect]
     Active Substance: ATENOLOL
     Indication: HYPERTENSION
     Dosage: 25 MG, 1X/DAY
     Route: 048
     Dates: start: 20130101, end: 20130615
  6. CARDURA [Concomitant]
     Active Substance: DOXAZOSIN MESYLATE
     Dosage: 4 MG TABLETS
  7. AZATHIOPRINE. [Concomitant]
     Active Substance: AZATHIOPRINE
     Dosage: 100 MG,

REACTIONS (3)
  - Hypoglycaemia [Recovered/Resolved]
  - Hypokalaemia [Recovered/Resolved]
  - Drug interaction [Recovered/Resolved]

NARRATIVE: CASE EVENT DATE: 20130615
